FAERS Safety Report 10718228 (Version 1)
Quarter: 2015Q1

REPORT INFORMATION
  Report Type: Spontaneous
  Country: US (occurrence: US)
  Receive Date: 20150118
  Receipt Date: 20150118
  Transmission Date: 20150721
  Serious: No
  Sender: FDA-Public Use
  Company Number: US-ASTRAZENECA-2015SE05094

PATIENT
  Sex: Female

DRUGS (4)
  1. STATINS [Suspect]
     Active Substance: UNSPECIFIED INGREDIENT
     Route: 065
  2. NEXIUM 24HR [Suspect]
     Active Substance: ESOMEPRAZOLE MAGNESIUM
     Route: 048
  3. STADOL [Suspect]
     Active Substance: BUTORPHANOL TARTRATE
     Route: 065
  4. DEMEROL [Suspect]
     Active Substance: MEPERIDINE HYDROCHLORIDE
     Route: 065

REACTIONS (1)
  - Drug hypersensitivity [Unknown]
